FAERS Safety Report 9732742 (Version 1)
Quarter: 2013Q4

REPORT INFORMATION
  Report Type: Spontaneous
  Country: US (occurrence: US)
  Receive Date: 20131204
  Receipt Date: 20131204
  Transmission Date: 20140711
  Serious: Yes (Other)
  Sender: FDA-Public Use
  Company Number: US-GLAXOSMITHKLINE-A1051960A

PATIENT
  Age: 61 Year
  Sex: Female

DRUGS (3)
  1. VENTOLIN [Suspect]
     Indication: RESPIRATORY DISORDER
     Dosage: 90MCG UNKNOWN
     Route: 065
     Dates: start: 20090127
  2. FLOVENT [Suspect]
     Indication: RESPIRATORY DISORDER
     Dosage: 110MCG UNKNOWN
     Route: 065
     Dates: start: 20090127
  3. SEREVENT [Suspect]
     Indication: RESPIRATORY DISORDER
     Dosage: 50MCG UNKNOWN
     Route: 065
     Dates: start: 20090127

REACTIONS (2)
  - Status asthmaticus [Unknown]
  - Inhalation therapy [Unknown]
